FAERS Safety Report 9368801 (Version 1)
Quarter: 2013Q2

REPORT INFORMATION
  Report Type: Report from Study
  Country: CN (occurrence: CN)
  Receive Date: 20130626
  Receipt Date: 20130626
  Transmission Date: 20140414
  Serious: Yes (Hospitalization)
  Sender: FDA-Public Use
  Company Number: CN-ROCHE-1239900

PATIENT
  Age: 49 Year
  Sex: Male
  Weight: 65 kg

DRUGS (5)
  1. MYCOPHENOLATE MOFETIL [Suspect]
     Indication: RENAL TRANSPLANT
     Route: 048
     Dates: start: 200103
  2. CYCLOSPORIN A [Suspect]
     Indication: RENAL TRANSPLANT
     Route: 048
     Dates: end: 200103
  3. CYCLOSPORIN A [Suspect]
     Dosage: 5DF ONCE A DAY AND 4DF ONCE A DAY ALTERNATIVELY
     Route: 048
  4. CYCLOSPORIN A [Suspect]
     Dosage: ONCE A DAU ALTERNATIVELY
     Route: 048
  5. PREDNISONE [Concomitant]
     Indication: RENAL TRANSPLANT
     Dosage: DRUG MENTINOED AS PREDNISONE ACETATA
     Route: 048
     Dates: start: 200103

REACTIONS (11)
  - Hypoaesthesia [Unknown]
  - Epicondylitis [Not Recovered/Not Resolved]
  - Exostosis [Not Recovered/Not Resolved]
  - Acne [Not Recovered/Not Resolved]
  - Red blood cell count decreased [Unknown]
  - Haemoglobin decreased [Unknown]
  - Blood uric acid increased [Not Recovered/Not Resolved]
  - Blood cholesterol increased [Not Recovered/Not Resolved]
  - Blood glucose increased [Not Recovered/Not Resolved]
  - Cardiovascular disorder [Unknown]
  - Local swelling [Not Recovered/Not Resolved]
